FAERS Safety Report 12664664 (Version 1)
Quarter: 2016Q3

REPORT INFORMATION
  Report Type: Report from Study
  Country: US (occurrence: US)
  Receive Date: 20160818
  Receipt Date: 20160818
  Transmission Date: 20161109
  Serious: No
  Sender: FDA-Public Use
  Company Number: US-AEGERION PHARMACEUTICAL INC.-AEGR002574

PATIENT
  Age: 53 Year
  Sex: Male
  Weight: 101.59 kg

DRUGS (1)
  1. JUXTAPID [Suspect]
     Active Substance: LOMITAPIDE MESYLATE
     Indication: PRODUCT USED FOR UNKNOWN INDICATION
     Dosage: 5 MG, UNK
     Route: 048
     Dates: start: 20150102

REACTIONS (2)
  - Diarrhoea [Recovered/Resolved]
  - Product used for unknown indication [Unknown]

NARRATIVE: CASE EVENT DATE: 20160509
